FAERS Safety Report 8609956 (Version 3)
Quarter: 2013Q1

REPORT INFORMATION
  Report Type: Spontaneous
  Country: MX (occurrence: MX)
  Receive Date: 20120612
  Receipt Date: 20130128
  Transmission Date: 20140127
  Serious: Yes (Hospitalization)
  Sender: FDA-Public Use
  Company Number: PHHY2012MX049526

PATIENT
  Age: 74 None
  Sex: Female

DRUGS (3)
  1. DIOVAN [Suspect]
     Indication: HYPERTENSION
     Dosage: 2 DF, DAILY
     Dates: start: 2005
  2. PLENDIL [Concomitant]
     Indication: BLOOD PRESSURE ABNORMAL
     Dosage: 2 DF, DAILY
  3. INSULIN [Concomitant]
     Indication: DIABETES MELLITUS
     Dosage: 20 IU, PER DAY

REACTIONS (10)
  - Cerebrovascular accident [Recovered/Resolved with Sequelae]
  - Heat stroke [Recovered/Resolved with Sequelae]
  - Dehydration [Recovered/Resolved with Sequelae]
  - Malaise [Recovered/Resolved with Sequelae]
  - Blood glucose decreased [Recovered/Resolved with Sequelae]
  - Embolism [Recovered/Resolved with Sequelae]
  - Cerebral ischaemia [Recovered/Resolved with Sequelae]
  - Gait disturbance [Recovered/Resolved with Sequelae]
  - Renal disorder [Recovered/Resolved with Sequelae]
  - Blood pressure inadequately controlled [Recovered/Resolved with Sequelae]
